FAERS Safety Report 5910307-4 (Version None)
Quarter: 2008Q4

REPORT INFORMATION
  Report Type: 
  Country: None (occurrence: None)
  Receive Date: 20081007
  Receipt Date: 20080110
  Transmission Date: 20090506
  Serious: Yes (Other)
  Sender: FDA-Public Use
  Company Number: US-ASTRAZENECA-2007UW26293

PATIENT
  Age: 67 Year
  Sex: Female
  Weight: 70.3 kg

DRUGS (9)
  1. ARIMIDEX [Suspect]
     Indication: BREAST CANCER
     Route: 048
     Dates: start: 20051018, end: 20070101
  2. ARIMIDEX [Suspect]
     Route: 048
     Dates: start: 20070501
  3. SYNTHROID [Concomitant]
  4. ZOCOR [Concomitant]
  5. ASPIRIN [Concomitant]
  6. MULTI-VITAMINS [Concomitant]
  7. VITAMIN D [Concomitant]
  8. VITAMIN B [Concomitant]
  9. GLUCOSAMINE WITHOUT CHONDROITIN [Concomitant]

REACTIONS (5)
  - ARTHRALGIA [None]
  - CARPAL TUNNEL SYNDROME [None]
  - MUSCULOSKELETAL STIFFNESS [None]
  - OSTEOARTHRITIS [None]
  - VULVOVAGINAL DRYNESS [None]
